FAERS Safety Report 6701575-X (Version None)
Quarter: 2010Q2

REPORT INFORMATION
  Report Type: 
  Country: None (occurrence: None)
  Receive Date: 20100429
  Receipt Date: 20100423
  Transmission Date: 20101027
  Serious: Yes (Other)
  Sender: FDA-Public Use
  Company Number: JP-SANOFI-AVENTIS-2010SA006774

PATIENT
  Age: 83 Year
  Sex: Female
  Weight: 40 kg

DRUGS (9)
  1. PLAVIX [Suspect]
     Indication: THROMBOSIS PROPHYLAXIS
     Route: 048
     Dates: start: 20100109, end: 20100119
  2. PANALDINE [Suspect]
     Indication: ANGINA PECTORIS
     Route: 048
     Dates: start: 20091209, end: 20100108
  3. PANALDINE [Suspect]
     Route: 048
     Dates: start: 20091209, end: 20100108
  4. ASPIRIN [Concomitant]
     Route: 048
     Dates: start: 20091111
  5. ISOSORBIDE DINITRATE [Concomitant]
     Indication: ANGINA PECTORIS
     Route: 062
     Dates: start: 20091111
  6. FLUVASTATIN [Concomitant]
     Route: 048
     Dates: start: 20091111
  7. TAKEPRON [Concomitant]
     Indication: PROPHYLAXIS
     Route: 048
     Dates: start: 20091111
  8. CONIEL [Concomitant]
     Indication: HYPERTENSION
     Route: 048
     Dates: start: 20091222
  9. CALSLOT [Concomitant]
     Indication: HYPERTENSION
     Route: 048
     Dates: start: 19550101, end: 20091221

REACTIONS (2)
  - CONDITION AGGRAVATED [None]
  - HEPATIC FUNCTION ABNORMAL [None]
